FAERS Safety Report 8216913-9 (Version None)
Quarter: 2012Q1

REPORT INFORMATION
  Report Type: 
  Country: None (occurrence: None)
  Receive Date: 20120318
  Receipt Date: 20120223
  Transmission Date: 20120608
  Serious: No
  Sender: FDA-Public Use
  Company Number: US-ROXANE LABORATORIES, INC.-2012-RO-00696RO

PATIENT
  Age: 29 Year
  Sex: Male

DRUGS (3)
  1. PROPRANOLOL [Concomitant]
     Indication: HYPERTENSION
  2. LITHIUM CARBONATE [Suspect]
     Indication: BIPOLAR DISORDER
     Dosage: 1350 MG
     Route: 048
     Dates: start: 20100301
  3. SYNTHROID [Concomitant]
     Indication: HYPOTHYROIDISM

REACTIONS (2)
  - FAECAL INCONTINENCE [None]
  - DIARRHOEA [None]
